FAERS Safety Report 4822299-X (Version None)
Quarter: 2005Q4

REPORT INFORMATION
  Report Type: 
  Country: None (occurrence: None)
  Receive Date: 20051103
  Receipt Date: 20051014
  Transmission Date: 20060501
  Serious: Yes (Other)
  Sender: FDA-Public Use
  Company Number: USA031152233

PATIENT
  Sex: Female
  Weight: 62 kg

DRUGS (6)
  1. ILETIN [Suspect]
     Dates: start: 20030101
  2. NPH ILETIN I (BEEF-PORK) [Suspect]
     Indication: DIABETES MELLITUS
     Dates: start: 19730101, end: 19830101
  3. HUMULIN L [Suspect]
     Indication: DIABETES MELLITUS
     Dates: start: 19830101, end: 19930101
  4. HUMULIN R [Suspect]
     Indication: DIABETES MELLITUS
     Dates: start: 19830101, end: 19930101
  5. NOVOLIN L(INSULIN HUMAN ZINC SUSPENSION) [Concomitant]
  6. NOVOLIN R [Concomitant]

REACTIONS (8)
  - BLOOD GLUCOSE FLUCTUATION [None]
  - FATIGUE [None]
  - FEELING ABNORMAL [None]
  - FEELING HOT [None]
  - INFLUENZA LIKE ILLNESS [None]
  - MALAISE [None]
  - RENAL DISORDER [None]
  - VISUAL ACUITY REDUCED [None]
